FAERS Safety Report 7101277-4 (Version None)
Quarter: 2010Q4

REPORT INFORMATION
  Report Type: 
  Country: None (occurrence: None)
  Receive Date: 20101115
  Receipt Date: 20101108
  Transmission Date: 20110411
  Serious: Yes (Death, Other)
  Sender: FDA-Public Use
  Company Number: DE-JNJFOC-20101101889

PATIENT
  Age: 88 Year
  Sex: Male

DRUGS (11)
  1. RISPERDAL [Suspect]
     Indication: ILL-DEFINED DISORDER
     Route: 048
     Dates: start: 20090930
  2. STILNOX [Suspect]
     Indication: ILL-DEFINED DISORDER
     Route: 048
     Dates: end: 20090929
  3. DOMINAL [Suspect]
     Indication: ILL-DEFINED DISORDER
     Route: 048
     Dates: start: 20090930
  4. MELPERON [Suspect]
     Indication: ILL-DEFINED DISORDER
     Route: 048
  5. MELPERON [Suspect]
     Route: 048
  6. ATACAND [Concomitant]
     Route: 048
  7. FUROSEMID [Concomitant]
     Route: 048
  8. AGGRENOX [Concomitant]
     Route: 048
  9. LANITOP [Concomitant]
     Route: 048
  10. OMEPRAZOLE [Concomitant]
     Route: 048
  11. PREDNISOLONE [Concomitant]
     Route: 048

REACTIONS (3)
  - BLOOD CREATININE INCREASED [None]
  - DEATH [None]
  - HYPERKALAEMIA [None]
